FAERS Safety Report 12860132 (Version 1)
Quarter: 2016Q4

REPORT INFORMATION
  Report Type: Spontaneous
  Country: US (occurrence: US)
  Receive Date: 20161017
  Receipt Date: 20161017
  Transmission Date: 20170207
  Serious: Yes (Hospitalization, Other)
  Sender: FDA-Public Use
  Company Number: None

PATIENT
  Age: 18 Year
  Sex: Female
  Weight: 85.35 kg

DRUGS (2)
  1. SUBOXONE [Suspect]
     Active Substance: BUPRENORPHINE HYDROCHLORIDE\NALOXONE HYDROCHLORIDE
     Indication: DRUG ABUSE
     Dosage: 8MG/2MG ONCE DAILY SUBLINGUALLY
     Route: 060
     Dates: start: 20160620, end: 20160701
  2. SUBOXONE [Suspect]
     Active Substance: BUPRENORPHINE HYDROCHLORIDE\NALOXONE HYDROCHLORIDE
     Dosage: 8MG/4MG ONCE DAILY SUBLINGUALLY
     Route: 060
     Dates: start: 20160808, end: 20160912

REACTIONS (4)
  - Vomiting [None]
  - Nausea [None]
  - Drug intolerance [None]
  - Overdose [None]

NARRATIVE: CASE EVENT DATE: 20160912
